FAERS Safety Report 10399070 (Version 1)
Quarter: 2014Q3

REPORT INFORMATION
  Report Type: Spontaneous
  Country: GB (occurrence: GB)
  Receive Date: 20140821
  Receipt Date: 20140821
  Transmission Date: 20150326
  Serious: Yes (Hospitalization, Other)
  Sender: FDA-Public Use
  Company Number: GB-ACTAVIS-2014-17787

PATIENT
  Age: 28 Year
  Sex: Female

DRUGS (3)
  1. DICLOFENAC (UNKNOWN) [Suspect]
     Active Substance: DICLOFENAC SODIUM
     Dosage: 75 MG, DAILY
     Route: 065
  2. DICLOFENAC (UNKNOWN) [Suspect]
     Active Substance: DICLOFENAC SODIUM
     Indication: SCIATICA
     Dosage: UNK UNK, DAILY; 75-150 MG (1-2 TABLETS)
     Route: 065
  3. DICLOFENAC (UNKNOWN) [Suspect]
     Active Substance: DICLOFENAC SODIUM
     Dosage: 75 MG, PRN
     Route: 048

REACTIONS (2)
  - Vaginal haemorrhage [Unknown]
  - Maternal exposure during pregnancy [Unknown]
